FAERS Safety Report 9470944 (Version 1)
Quarter: 2013Q3

REPORT INFORMATION
  Report Type: Spontaneous
  Country: US (occurrence: None)
  Receive Date: 20130820
  Receipt Date: 20130820
  Transmission Date: 20140515
  Serious: No
  Sender: FDA-Public Use
  Company Number: None

PATIENT
  Age: 77 Year
  Sex: Female
  Weight: 64.41 kg

DRUGS (4)
  1. DILTIAZEM [Suspect]
  2. METOPROLOL [Concomitant]
  3. ASPIRIN [Concomitant]
  4. VEGETABLE LAXATIVE [Concomitant]

REACTIONS (1)
  - Tremor [None]
